FAERS Safety Report 5696774-2 (Version None)
Quarter: 2008Q2

REPORT INFORMATION
  Report Type: 
  Country: None (occurrence: None)
  Receive Date: 20080403
  Receipt Date: 20080403
  Transmission Date: 20081010
  Serious: Yes (Death)
  Sender: FDA-Public Use
  Company Number: None

PATIENT
  Sex: Female

DRUGS (1)
  1. LOVENOX [Suspect]
     Indication: ATRIAL FIBRILLATION
     Dosage: 80 MG QD SQ
     Route: 058
     Dates: start: 20080113, end: 20080101

REACTIONS (3)
  - INTERNATIONAL NORMALISED RATIO INCREASED [None]
  - PERICARDIAL EFFUSION [None]
  - RENAL FAILURE ACUTE [None]
